FAERS Safety Report 15298580 (Version 1)
Quarter: 2018Q3

REPORT INFORMATION
  Report Type: Spontaneous
  Country: FR (occurrence: FR)
  Receive Date: 20180820
  Receipt Date: 20180820
  Transmission Date: 20181010
  Serious: Yes (Hospitalization, Other)
  Sender: FDA-Public Use
  Company Number: FR-MUNDIPHARMA DS AND PHARMACOVIGILANCE-GBR-2016-0039173

PATIENT
  Age: 83 Year
  Sex: Female

DRUGS (13)
  1. SELOKEN                            /00376902/ [Concomitant]
     Active Substance: METOPROLOL TARTRATE
     Dosage: 2 DF, DAILY
  2. DUROGESIC [Suspect]
     Active Substance: FENTANYL
     Indication: PAIN
     Dosage: 1 DROP, Q72H
     Route: 062
     Dates: start: 20160425, end: 20160511
  3. LEVEMIR [Suspect]
     Active Substance: INSULIN DETEMIR
     Indication: DIABETES MELLITUS
     Dosage: 34 IU, DAILY
     Route: 058
     Dates: end: 20160510
  4. KARDEGIC [Concomitant]
     Active Substance: ASPIRIN DL-LYSINE
     Dosage: 1 DF, DAILY
  5. TELMISARTAN. [Suspect]
     Active Substance: TELMISARTAN
     Indication: HYPERTENSION
     Dosage: 80 MG, DAILY
     Route: 048
     Dates: end: 20160511
  6. CATIONORM [Concomitant]
     Active Substance: CETALKONIUM\GLYCERIN\MINERAL OIL\POLOXAMER 188\TROMETHAMINE\TYLOXAPOL
  7. ARIXTRA [Concomitant]
     Active Substance: FONDAPARINUX SODIUM
     Dosage: UNK, DAILY
  8. OXYNORM 10 MG, GELULE [Suspect]
     Active Substance: OXYCODONE HYDROCHLORIDE
     Indication: PAIN
     Dosage: 1 DF, PRN
     Route: 048
     Dates: end: 20160511
  9. ATORVASTATINE [Concomitant]
     Active Substance: ATORVASTATIN
     Dosage: 1 DF, PM
  10. DIFFU K [Concomitant]
     Active Substance: POTASSIUM CHLORIDE
     Dosage: 2 DF, AM
  11. LASILIX                            /00032601/ [Suspect]
     Active Substance: FUROSEMIDE
     Indication: HYPERTENSION
     Dosage: 1 DF, DAILY
     Route: 048
     Dates: end: 20160510
  12. POVIDONE [Concomitant]
     Active Substance: POVIDONE
  13. MACROGOL [Concomitant]
     Active Substance: POLYETHYLENE GLYCOLS

REACTIONS (5)
  - Cholecystitis acute [Unknown]
  - Hyponatraemia [Recovered/Resolved]
  - Hypoglycaemia [Recovered/Resolved]
  - Acute kidney injury [Unknown]
  - Confusional state [Recovered/Resolved]

NARRATIVE: CASE EVENT DATE: 20160509
